FAERS Safety Report 5726704-6 (Version None)
Quarter: 2008Q2

REPORT INFORMATION
  Report Type: 
  Country: None (occurrence: None)
  Receive Date: 20080502
  Receipt Date: 20080424
  Transmission Date: 20081010
  Serious: Yes (Other)
  Sender: FDA-Public Use
  Company Number: BR-PFIZER INC-2007084766

PATIENT
  Sex: Female

DRUGS (7)
  1. LIPITOR [Suspect]
     Indication: BLOOD CHOLESTEROL INCREASED
     Route: 048
  2. ANGIPRESS [Concomitant]
     Route: 048
  3. PLAVIX [Concomitant]
     Route: 048
  4. ATENOLOL [Concomitant]
  5. LOSARTAN POTASSIUM AND HYDROCHLOROTHIAZIDE [Concomitant]
     Route: 048
  6. OMEPRAZOLE [Concomitant]
     Route: 048
  7. ANCORON [Concomitant]
     Route: 048

REACTIONS (1)
  - ANGIOPLASTY [None]
